FAERS Safety Report 8864802 (Version 1)
Quarter: 2012Q4

REPORT INFORMATION
  Report Type: 
  Country: US (occurrence: US)
  Receive Date: 20121024
  Receipt Date: 20121024
  Transmission Date: 20130627
  Serious: No
  Sender: FDA-Public Use
  Company Number: US-AMGEN-USASP2011062300

PATIENT
  Age: 46 Year
  Sex: Female

DRUGS (3)
  1. ENBREL [Suspect]
     Indication: RHEUMATOID ARTHRITIS
     Dosage: 50 mg, qwk
     Dates: start: 20110808, end: 20111213
  2. PLAQUENIL [Concomitant]
     Dosage: 200 mg, bid
     Dates: start: 201102
  3. METHOTREXATE [Concomitant]
     Dosage: 15 mg, qwk
     Dates: start: 201104

REACTIONS (2)
  - Rheumatoid arthritis [Not Recovered/Not Resolved]
  - Diverticulitis [Recovered/Resolved]
